FAERS Safety Report 6515973-0 (Version None)
Quarter: 2009Q4

REPORT INFORMATION
  Report Type: 
  Country: None (occurrence: None)
  Receive Date: 20091223
  Receipt Date: 20091215
  Transmission Date: 20100525
  Serious: Yes (Hospitalization)
  Sender: FDA-Public Use
  Company Number: JP-ELI_LILLY_AND_COMPANY-JP200912003534

PATIENT
  Sex: Male
  Weight: 49 kg

DRUGS (8)
  1. GEMCITABINE HCL [Suspect]
     Indication: PANCREATIC CARCINOMA NON-RESECTABLE
     Dosage: 1000 MG/M2, OTHER
     Route: 042
     Dates: start: 20090701
  2. BLINDED THERAPY [Suspect]
     Indication: PANCREATIC CARCINOMA NON-RESECTABLE
     Dosage: 2 ML, WEEKLY (1/W)
     Route: 058
     Dates: start: 20090701
  3. NORVASK [Concomitant]
     Indication: HYPERTENSION
     Dosage: 5 MG, DAILY (1/D)
     Route: 048
     Dates: start: 20041105
  4. DIOVAN [Concomitant]
     Indication: HYPERTENSION
     Dosage: 80 MG, DAILY (1/D)
     Route: 048
     Dates: start: 20041105
  5. PARIET [Concomitant]
     Indication: DYSPEPSIA
     Dosage: 10 MG, DAILY (1/D)
     Route: 048
     Dates: start: 20090409
  6. GANATON [Concomitant]
     Dosage: 150 MG, DAILY (1/D)
     Route: 048
     Dates: start: 20090409
  7. NOVOLIN R [Concomitant]
     Indication: DIABETES MELLITUS
     Dosage: 16 ML, DAILY (1/D)
     Route: 058
     Dates: start: 20090615
  8. OXYCONTIN [Concomitant]
     Indication: PAIN
     Dosage: 40 MG, DAILY (1/D)
     Route: 048
     Dates: start: 20090615

REACTIONS (1)
  - HYPOGLYCAEMIC UNCONSCIOUSNESS [None]
